FAERS Safety Report 7337740-0 (Version None)
Quarter: 2011Q1

REPORT INFORMATION
  Report Type: 
  Country: None (occurrence: None)
  Receive Date: 20110303
  Receipt Date: 20110303
  Transmission Date: 20110831
  Serious: Yes (Hospitalization)
  Sender: FDA-Public Use
  Company Number: None

PATIENT
  Age: 56 Year
  Sex: Male
  Weight: 126 kg

DRUGS (1)
  1. LISINOPRIL [Suspect]
     Dosage: 2.5 MG EVERY DAY PO
     Route: 048
     Dates: start: 20100728, end: 20101129

REACTIONS (3)
  - DRUG INEFFECTIVE [None]
  - ANGIOEDEMA [None]
  - LIP SWELLING [None]
